FAERS Safety Report 4456814-5 (Version None)
Quarter: 2004Q3

REPORT INFORMATION
  Report Type: 
  Country: None (occurrence: None)
  Receive Date: 20040921
  Receipt Date: 20040908
  Transmission Date: 20050211
  Serious: Yes (Other)
  Sender: FDA-Public Use
  Company Number: HQWYE880908SEP04

PATIENT
  Sex: Male

DRUGS (1)
  1. RIFUN      (PANTOPRAZOLE ) [Suspect]
     Dosage: SEVERAL TIMES, SOME DOSE FORM

REACTIONS (1)
  - DEEP VEIN THROMBOSIS [None]
